FAERS Safety Report 14718055 (Version 1)
Quarter: 2018Q2

REPORT INFORMATION
  Report Type: Spontaneous
  Country: US (occurrence: US)
  Receive Date: 20180404
  Receipt Date: 20180404
  Transmission Date: 20180711
  Serious: No
  Sender: FDA-Public Use
  Company Number: US-SA-2018SA065314

PATIENT
  Age: 42 Year
  Sex: Female

DRUGS (2)
  1. DUPIXENT [Suspect]
     Active Substance: DUPILUMAB
     Dosage: EVERY 2 WEEK
     Route: 058
     Dates: start: 20180103
  2. DUPIXENT [Suspect]
     Active Substance: DUPILUMAB
     Dosage: EVERY 2 WEEK
     Route: 058

REACTIONS (5)
  - Injection site vesicles [Unknown]
  - Drug dose omission [Unknown]
  - Migraine [Not Recovered/Not Resolved]
  - Nausea [Not Recovered/Not Resolved]
  - Injection site pain [Recovered/Resolved]

NARRATIVE: CASE EVENT DATE: 2018
